FAERS Safety Report 24461103 (Version 1)
Quarter: 2024Q4

REPORT INFORMATION
  Report Type: Spontaneous
  Country: US (occurrence: None)
  Receive Date: 20241018
  Receipt Date: 20241018
  Transmission Date: 20250115
  Serious: No
  Sender: Public
  Company Number: None

PATIENT
  Age: 66 Year
  Sex: Female

DRUGS (1)
  1. AMBRISENTAN [Suspect]
     Active Substance: AMBRISENTAN
     Indication: Pulmonary arterial hypertension
     Dosage: FREQUENCY : DAILY;?
     Route: 048

REACTIONS (7)
  - Headache [None]
  - Diarrhoea [None]
  - Abdominal distension [None]
  - Fatigue [None]
  - Pain [None]
  - Chest discomfort [None]
  - Chest discomfort [None]
